FAERS Safety Report 14122691 (Version 2)
Quarter: 2017Q4

REPORT INFORMATION
  Report Type: Spontaneous
  Country: NL (occurrence: NL)
  Receive Date: 20171024
  Receipt Date: 20171119
  Transmission Date: 20180321
  Serious: Yes (Other)
  Sender: FDA-Public Use
  Company Number: NL-ASTRAZENECA-2017SF07831

PATIENT
  Sex: Female

DRUGS (2)
  1. CRESTOR [Suspect]
     Active Substance: ROSUVASTATIN CALCIUM
     Indication: HYPERCHOLESTEROLAEMIA
     Dosage: PROVISACOR
     Route: 048
  2. CRESTOR [Suspect]
     Active Substance: ROSUVASTATIN CALCIUM
     Indication: HYPERCHOLESTEROLAEMIA
     Route: 048
     Dates: start: 201703

REACTIONS (7)
  - Drug ineffective [Unknown]
  - Myalgia [Unknown]
  - Myocardial infarction [Unknown]
  - Blood cholesterol increased [Unknown]
  - Therapeutic response unexpected [Unknown]
  - Off label use [Unknown]
  - Product use in unapproved indication [Unknown]
